FAERS Safety Report 4606227-8 (Version None)
Quarter: 2005Q1

REPORT INFORMATION
  Report Type: 
  Country: None (occurrence: None)
  Receive Date: 20050311
  Receipt Date: 20030616
  Transmission Date: 20050727
  Serious: Yes (Hospitalization)
  Sender: FDA-Public Use
  Company Number: ES-ABBOTT-03P-144-0222249-01

PATIENT
  Sex: Female
  Weight: 65 kg

DRUGS (16)
  1. HUMIRA [Suspect]
     Indication: RHEUMATOID ARTHRITIS
     Route: 058
     Dates: start: 20030212, end: 20030613
  2. OMEPRAZOLE [Concomitant]
     Indication: PROPHYLAXIS AGAINST GASTROINTESTINAL ULCER
     Route: 048
     Dates: start: 20010319
  3. DEFLAZACORT [Concomitant]
     Indication: ARTHRITIS
     Route: 048
     Dates: start: 20010723
  4. IRON SUCCINYL-PROTEIN COMPLEX [Concomitant]
     Indication: ANAEMIA
     Route: 048
     Dates: start: 20011005, end: 20020306
  5. METHOTREXATE [Concomitant]
     Indication: RHEUMATOID ARTHRITIS
     Route: 030
     Dates: start: 20021022
  6. METHOTREXATE [Concomitant]
     Route: 048
     Dates: start: 20011218, end: 20021022
  7. CALCIUM FOLINATE [Concomitant]
     Indication: PROPHYLAXIS
     Route: 048
     Dates: start: 20011218
  8. FERROUS SULFATE TAB [Concomitant]
     Indication: ANAEMIA
     Route: 048
     Dates: start: 20020307
  9. LEKOVIT CA [Concomitant]
     Indication: OSTEOPENIA
     Route: 048
     Dates: start: 20011218
  10. PREDNISONE [Concomitant]
     Route: 048
  11. OMEPRAZOLE [Concomitant]
     Route: 048
  12. PARACETAMOL [Concomitant]
  13. RIFATER [Concomitant]
  14. ETHAMBUTOL DIHYDROCHLORIDE [Concomitant]
  15. FLUCONAZOLE [Concomitant]
     Dates: end: 20030629
  16. FERROUS SULFATE TAB [Concomitant]
     Route: 048

REACTIONS (1)
  - DISSEMINATED TUBERCULOSIS [None]
